FAERS Safety Report 19834621 (Version 1)
Quarter: 2021Q3

REPORT INFORMATION
  Report Type: Other
  Country: US (occurrence: US)
  Receive Date: 20210915
  Receipt Date: 20210915
  Transmission Date: 20211014
  Serious: No
  Sender: FDA-Public Use
  Company Number: US-LEADIANT BIOSCIENCES INC-2020STPI000355

PATIENT
  Sex: Female

DRUGS (6)
  1. CITALOPRAM [Concomitant]
     Active Substance: CITALOPRAM HYDROBROMIDE
  2. AMOXICILLIN. [Concomitant]
     Active Substance: AMOXICILLIN
  3. LISINOPRIL. [Concomitant]
     Active Substance: LISINOPRIL
  4. VITAMIN D [COLECALCIFEROL] [Concomitant]
     Active Substance: CHOLECALCIFEROL
  5. LEVETIRACETAM. [Concomitant]
     Active Substance: LEVETIRACETAM
  6. MATULANE [Suspect]
     Active Substance: PROCARBAZINE HYDROCHLORIDE
     Indication: BONE DISORDER
     Dosage: 50 MG, 2 CAPSULES DAILY FOR 5 DAYS EVERY 28 DAY CYCLE
     Route: 048
     Dates: start: 20191217

REACTIONS (1)
  - Nausea [Unknown]
